FAERS Safety Report 6379662-8 (Version None)
Quarter: 2009Q3

REPORT INFORMATION
  Report Type: 
  Country: None (occurrence: None)
  Receive Date: 20090924
  Receipt Date: 20090924
  Transmission Date: 20100115
  Serious: Yes (Hospitalization)
  Sender: FDA-Public Use
  Company Number: None

PATIENT
  Age: 40 Year
  Sex: Female
  Weight: 81.6 kg

DRUGS (5)
  1. FASLODEX [Suspect]
     Indication: BREAST CANCER
     Dosage: 500MG DAY1,14,28
     Dates: start: 20080624
  2. RAD001 [Suspect]
     Indication: BREAST CANCER
     Dosage: 5MG PO DAILY
     Route: 048
     Dates: start: 20080624
  3. DILAUDID [Concomitant]
  4. FENTANYL [Concomitant]
  5. PERI-COLACE [Concomitant]

REACTIONS (3)
  - DEHYDRATION [None]
  - NAUSEA [None]
  - VOMITING [None]
